FAERS Safety Report 16027317 (Version 1)
Quarter: 2019Q1

REPORT INFORMATION
  Report Type: Spontaneous
  Country: BR (occurrence: BR)
  Receive Date: 20190304
  Receipt Date: 20190304
  Transmission Date: 20190418
  Serious: Yes (Other)
  Sender: FDA-Public Use
  Company Number: BR-LUPIN PHARMACEUTICALS INC.-2018-09028

PATIENT
  Sex: Male

DRUGS (4)
  1. BECLOMETHASONE                     /00212601/ [Suspect]
     Active Substance: BECLOMETHASONE
     Indication: ASTHMA
     Dosage: 1000 MCG, UNK
     Route: 055
  2. FLUTICASONE W/SALMETEROL [Suspect]
     Active Substance: FLUTICASONE PROPIONATE\SALMETEROL XINAFOATE
     Indication: ASTHMA
     Dosage: 500 MCG, UNK
     Route: 055
  3. BUDESONIDE. [Suspect]
     Active Substance: BUDESONIDE
     Indication: ASTHMA
     Dosage: UNK, QD, 1200
     Route: 055
  4. BUDESONIDE W/FORMOTEROL [Suspect]
     Active Substance: BUDESONIDE\FORMOTEROL
     Indication: ASTHMA
     Dosage: 800 MCG, UNK
     Route: 055

REACTIONS (2)
  - Growth retardation [Unknown]
  - Adrenal suppression [Unknown]
